FAERS Safety Report 17461001 (Version 1)
Quarter: 2020Q1

REPORT INFORMATION
  Report Type: Spontaneous
  Country: US (occurrence: US)
  Receive Date: 20200212
  Receipt Date: 20200212
  Transmission Date: 20200409
  Serious: No
  Sender: FDA-Public Use
  Company Number: None

PATIENT
  Age: 73 Year
  Sex: Female
  Weight: 70.31 kg

DRUGS (7)
  1. BYSTOLIC [Concomitant]
     Active Substance: NEBIVOLOL HYDROCHLORIDE
  2. UBIQUINOL [Concomitant]
     Active Substance: UBIQUINOL
  3. PROBIOTIC [Concomitant]
     Active Substance: PROBIOTICS NOS
  4. BABY ASPIRIN [Concomitant]
     Active Substance: ASPIRIN
  5. LATANOPROST .005% 125MCG/2.5ML [Suspect]
     Active Substance: LATANOPROST
     Dosage: ?          OTHER STRENGTH:125 MCG .005% 2.5 ;QUANTITY:1 GTT DROP(S);?
     Route: 047
     Dates: start: 2018
  6. MULTIVITAMIN [Concomitant]
     Active Substance: VITAMINS
  7. VITAMIN D3 [Concomitant]
     Active Substance: CHOLECALCIFEROL

REACTIONS (2)
  - Cough [None]
  - Energy increased [None]

NARRATIVE: CASE EVENT DATE: 20191025
